FAERS Safety Report 11288429 (Version 1)
Quarter: 2015Q3

REPORT INFORMATION
  Report Type: Spontaneous
  Country: BR (occurrence: BR)
  Receive Date: 20150721
  Receipt Date: 20150721
  Transmission Date: 20151125
  Serious: Yes (Other)
  Sender: FDA-Public Use
  Company Number: BR-PFIZER INC-2015239222

PATIENT
  Sex: Male

DRUGS (2)
  1. GEODON [Suspect]
     Active Substance: ZIPRASIDONE HYDROCHLORIDE\ZIPRASIDONE MESYLATE
     Dosage: 40 MG, 2X/DAY (40MG AFTER BREAKFAST AND 40MG AFTER DINNER)
     Route: 048
     Dates: start: 201501, end: 2015
  2. GEODON [Suspect]
     Active Substance: ZIPRASIDONE HYDROCHLORIDE\ZIPRASIDONE MESYLATE
     Dosage: 80 MG, 1X/DAY (80 MG, AFTER DINNER)
     Route: 048
     Dates: start: 2015

REACTIONS (5)
  - Discomfort [Unknown]
  - Anxiety [Unknown]
  - Blood pressure decreased [Unknown]
  - Dizziness [Unknown]
  - Asphyxia [Unknown]

NARRATIVE: CASE EVENT DATE: 2015
